FAERS Safety Report 11128652 (Version 2)
Quarter: 2015Q3

REPORT INFORMATION
  Report Type: Spontaneous
  Country: PH (occurrence: PH)
  Receive Date: 20150521
  Receipt Date: 20150924
  Transmission Date: 20151125
  Serious: Yes (Life-Threatening, Hospitalization)
  Sender: FDA-Public Use
  Company Number: PH-PFIZER INC-2015173503

PATIENT
  Age: 51 Year
  Sex: Female
  Weight: 57.5 kg

DRUGS (2)
  1. CELECOXIB. [Suspect]
     Active Substance: CELECOXIB
     Indication: MIGRAINE
     Dosage: 200 MG, SINGLE
     Route: 048
     Dates: start: 20150512, end: 20150512
  2. LUTEIN [Concomitant]
     Active Substance: LUTEIN
     Indication: SIGHT DISABILITY
     Dosage: 1 DF, SINGLE
     Route: 048
     Dates: start: 20150511, end: 20150511

REACTIONS (8)
  - Hypoaesthesia oral [Recovered/Resolved]
  - Blood pressure increased [Recovered/Resolved]
  - Rash [Recovered/Resolved]
  - Arrhythmia [Recovered/Resolved]
  - Dyspnoea [Recovered/Resolved]
  - Throat tightness [Recovered/Resolved]
  - Rash generalised [Recovered/Resolved]
  - Dysphagia [Recovered/Resolved]

NARRATIVE: CASE EVENT DATE: 20150512
